FAERS Safety Report 7458235-X (Version None)
Quarter: 2011Q2

REPORT INFORMATION
  Report Type: 
  Country: None (occurrence: None)
  Receive Date: 20110502
  Receipt Date: 20110502
  Transmission Date: 20111010
  Serious: Yes (Other)
  Sender: FDA-Public Use
  Company Number: None

PATIENT
  Age: 79 Year
  Sex: Male
  Weight: 83.9154 kg

DRUGS (1)
  1. NISOLDIPINE [Suspect]
     Indication: HYPERTENSION
     Dosage: 1 TABLET ONCE A DAY PO
     Route: 048
     Dates: start: 20101215, end: 20110501

REACTIONS (1)
  - COUGH [None]
